FAERS Safety Report 4851737-1 (Version None)
Quarter: 2005Q4

REPORT INFORMATION
  Report Type: 
  Country: None (occurrence: None)
  Receive Date: 20051213
  Receipt Date: 20051129
  Transmission Date: 20060501
  Serious: Yes (Hospitalization)
  Sender: FDA-Public Use
  Company Number: FR-AVENTIS-200513928FR

PATIENT
  Age: 63 Year
  Sex: Male

DRUGS (1)
  1. BIRODOGYL [Suspect]
     Route: 048
     Dates: start: 20051107, end: 20051114

REACTIONS (1)
  - PANCYTOPENIA [None]
